FAERS Safety Report 18207022 (Version 5)
Quarter: 2021Q3

REPORT INFORMATION
  Report Type: Report from Study
  Country: IN (occurrence: IN)
  Receive Date: 20200828
  Receipt Date: 20210924
  Transmission Date: 20211014
  Serious: Yes (Other)
  Sender: FDA-Public Use
  Company Number: NVSC2020IN177373

PATIENT
  Age: 62 Year
  Sex: Male

DRUGS (3)
  1. SPEXIB [Suspect]
     Active Substance: CERITINIB
     Dosage: 450 MG, QD
     Route: 065
     Dates: start: 20201216, end: 20210317
  2. SPEXIB [Suspect]
     Active Substance: CERITINIB
     Dosage: 450 MG, QD
     Route: 065
     Dates: start: 20210626
  3. SPEXIB [Suspect]
     Active Substance: CERITINIB
     Indication: NON-SMALL CELL LUNG CANCER
     Dosage: 450 MG, QD
     Route: 048
     Dates: start: 20200608, end: 20201115

REACTIONS (6)
  - Vomiting [Recovered/Resolved]
  - Hepatic infection [Recovered/Resolved]
  - Asthenia [Recovered/Resolved]
  - Cough [Unknown]
  - Diarrhoea [Unknown]
  - Nasopharyngitis [Unknown]

NARRATIVE: CASE EVENT DATE: 20201115
